FAERS Safety Report 5344570-8 (Version None)
Quarter: 2007Q2

REPORT INFORMATION
  Report Type: 
  Country: None (occurrence: None)
  Receive Date: 20070604
  Receipt Date: 20070523
  Transmission Date: 20071010
  Serious: Yes (Other)
  Sender: FDA-Public Use
  Company Number: GB-PFIZER INC-2007042909

PATIENT

DRUGS (1)
  1. HYDROCORTISONE ACETATE [Suspect]

REACTIONS (1)
  - ANAPHYLACTIC REACTION [None]
